FAERS Safety Report 9307464 (Version 1)
Quarter: 2013Q2

REPORT INFORMATION
  Report Type: Spontaneous
  Country: US (occurrence: US)
  Receive Date: 20130524
  Receipt Date: 20130524
  Transmission Date: 20140414
  Serious: No
  Sender: FDA-Public Use
  Company Number: US-009507513-1305USA011300

PATIENT
  Age: 19 Year
  Sex: Female
  Weight: 102.4 kg

DRUGS (1)
  1. NEXPLANON [Suspect]
     Indication: CONTRACEPTION
     Dosage: UNK
     Dates: start: 20130514

REACTIONS (5)
  - Implant site bruising [Unknown]
  - Implant site pain [Unknown]
  - Discomfort [Unknown]
  - Implant site discolouration [Unknown]
  - Pain [Unknown]
